FAERS Safety Report 17942576 (Version 1)
Quarter: 2020Q2

REPORT INFORMATION
  Report Type: Spontaneous
  Country: DE (occurrence: DE)
  Receive Date: 20200624
  Receipt Date: 20200624
  Transmission Date: 20200714
  Serious: Yes (Life-Threatening)
  Sender: FDA-Public Use
  Company Number: DE-BAXTER-2020BAX012421

PATIENT
  Age: 71 Year
  Sex: Female
  Weight: 92 kg

DRUGS (4)
  1. HEPARIN [Concomitant]
     Active Substance: HEPARIN SODIUM
     Indication: PULMONARY EMBOLISM
     Dosage: DAILY DOSE: 2000 IU INTERNATIONAL UNIT(S) EVERY HOURS
     Route: 041
     Dates: end: 20200417
  2. SEVOFLURAN BAXTER 100 % FLUSSIGKEIT ZUR HERSTELLUNG EINES DAMPFS ZUR I [Suspect]
     Active Substance: SEVOFLURANE
     Indication: SEDATION
     Dosage: SEVOFLURANE BAXTER INH. (OPEN SYSTEM), 0.6 - 0.9 VOL%
     Route: 055
     Dates: start: 20200411, end: 20200417
  3. MORPHINE [Concomitant]
     Active Substance: MORPHINE
     Indication: SEDATION
     Dosage: 100MG/50ML, 4-6 MG/H
     Route: 041
     Dates: end: 20200427
  4. PARACEFAN [Concomitant]
     Active Substance: CLONIDINE
     Indication: SEDATION
     Dosage: 1.5MG/50 ML, DAILY DOSE: 0.12 ?G MICROGRAM(S) EVERY HOURS
     Route: 041
     Dates: end: 20200422

REACTIONS (2)
  - Hypernatraemia [Recovering/Resolving]
  - Polyuria [Recovering/Resolving]

NARRATIVE: CASE EVENT DATE: 202004
